FAERS Safety Report 19192188 (Version 4)
Quarter: 2021Q2

REPORT INFORMATION
  Report Type: Spontaneous
  Country: US (occurrence: US)
  Receive Date: 20210428
  Receipt Date: 20210510
  Transmission Date: 20210717
  Serious: No
  Sender: FDA-Public Use
  Company Number: NVSC2021US095862

PATIENT
  Sex: Female

DRUGS (2)
  1. PATADAY [Suspect]
     Active Substance: OLOPATADINE HYDROCHLORIDE
     Indication: EYE ALLERGY
     Dosage: UNK
     Route: 047
     Dates: start: 20210422
  2. PATADAY [Suspect]
     Active Substance: OLOPATADINE HYDROCHLORIDE
     Indication: EYE PRURITUS
     Dosage: UNK
     Route: 047
     Dates: start: 20210423

REACTIONS (6)
  - Eyelid margin crusting [Recovering/Resolving]
  - Ocular hyperaemia [Unknown]
  - Erythema of eyelid [Recovering/Resolving]
  - Erythema of eyelid [Recovering/Resolving]
  - Periorbital swelling [Recovering/Resolving]
  - Swelling of eyelid [Recovering/Resolving]

NARRATIVE: CASE EVENT DATE: 20210423
